FAERS Safety Report 6968535-5 (Version None)
Quarter: 2010Q3

REPORT INFORMATION
  Report Type: 
  Country: None (occurrence: None)
  Receive Date: 20100907
  Receipt Date: 20100826
  Transmission Date: 20110219
  Serious: Yes (Death)
  Sender: FDA-Public Use
  Company Number: US-PFIZER INC-2010108189

PATIENT
  Age: 21 Year
  Sex: Male

DRUGS (3)
  1. ALPRAZOLAM [Suspect]
     Dosage: UNK
  2. ETHANOL [Suspect]
     Dosage: UNK
  3. OXYCODONE [Suspect]
     Dosage: UNK

REACTIONS (1)
  - DRUG TOXICITY [None]
